FAERS Safety Report 7279959-3 (Version None)
Quarter: 2011Q1

REPORT INFORMATION
  Report Type: 
  Country: None (occurrence: None)
  Receive Date: 20110208
  Receipt Date: 20110201
  Transmission Date: 20110831
  Serious: No
  Sender: FDA-Public Use
  Company Number: US-PFIZER INC-2011024094

PATIENT
  Sex: Male

DRUGS (5)
  1. LEXAPRO [Suspect]
  2. WELLBUTRIN [Suspect]
  3. PROZAC [Suspect]
     Dosage: UNK
  4. SINEQUAN [Suspect]
     Dosage: UNK
  5. TOFRANIL [Suspect]

REACTIONS (1)
  - DRUG INEFFECTIVE [None]
